FAERS Safety Report 16020315 (Version 1)
Quarter: 2019Q1

REPORT INFORMATION
  Report Type: Spontaneous
  Country: US (occurrence: US)
  Receive Date: 20190228
  Receipt Date: 20190228
  Transmission Date: 20190418
  Serious: Yes (Other)
  Sender: FDA-Public Use
  Company Number: US-ABBVIE-19K-163-2672764-00

PATIENT
  Sex: Female
  Weight: 110.78 kg

DRUGS (22)
  1. AMLODIPINE BESYLATE. [Concomitant]
     Active Substance: AMLODIPINE BESYLATE
     Indication: PRODUCT USED FOR UNKNOWN INDICATION
     Route: 048
     Dates: start: 20160226
  2. MAGNESIUM [Concomitant]
     Active Substance: MAGNESIUM
     Indication: PRODUCT USED FOR UNKNOWN INDICATION
  3. METOPROLOL TARTRATE. [Concomitant]
     Active Substance: METOPROLOL TARTRATE
     Indication: PRODUCT USED FOR UNKNOWN INDICATION
     Dosage: TAKE 1/2 TABLET PO BID
     Route: 048
     Dates: start: 20160229
  4. ASPIR 81 [Concomitant]
     Active Substance: ASPIRIN
     Indication: PRODUCT USED FOR UNKNOWN INDICATION
     Dosage: TBEC
     Dates: start: 20101214
  5. BENAZEPRIL HCL [Concomitant]
     Active Substance: BENAZEPRIL HYDROCHLORIDE
     Indication: PRODUCT USED FOR UNKNOWN INDICATION
     Route: 048
     Dates: start: 20160926
  6. LEVOTHYROXINE SODIUM. [Concomitant]
     Active Substance: LEVOTHYROXINE SODIUM
     Indication: PRODUCT USED FOR UNKNOWN INDICATION
  7. PRAVASTATIN SODIUM. [Concomitant]
     Active Substance: PRAVASTATIN SODIUM
     Indication: PRODUCT USED FOR UNKNOWN INDICATION
     Route: 048
  8. XELJANZ XR [Suspect]
     Active Substance: TOFACITINIB CITRATE
     Indication: RHEUMATOID ARTHRITIS
     Route: 048
  9. LIDOCAINE 5% EXTRA [Concomitant]
     Indication: PRODUCT USED FOR UNKNOWN INDICATION
     Dosage: APPLY AS DIRECTED
     Dates: start: 20170907
  10. ALBUTEROL. [Concomitant]
     Active Substance: ALBUTEROL
     Indication: PRODUCT USED FOR UNKNOWN INDICATION
     Dosage: 90 MCG/ACT ?INHALE 2 PUFFS
     Route: 055
     Dates: start: 20170512
  11. AMIODARONE HCL [Concomitant]
     Active Substance: AMIODARONE HYDROCHLORIDE
     Indication: PRODUCT USED FOR UNKNOWN INDICATION
     Dosage: EVERYOTHER DAY 1/2 TABLET
     Route: 048
  12. CALCIUM [Concomitant]
     Active Substance: CALCIUM
     Indication: PRODUCT USED FOR UNKNOWN INDICATION
     Route: 048
     Dates: start: 20160922
  13. ADVAIR DISKUS [Concomitant]
     Active Substance: FLUTICASONE PROPIONATE\SALMETEROL XINAFOATE
     Indication: PRODUCT USED FOR UNKNOWN INDICATION
     Dosage: 1 INHALATION?250-50 MCG/DOSE
     Route: 055
     Dates: start: 20110124, end: 20170512
  14. LEVOTHYROXINE SODIUM. [Concomitant]
     Active Substance: LEVOTHYROXINE SODIUM
     Indication: PRODUCT USED FOR UNKNOWN INDICATION
  15. NITROGLYCERIN. [Concomitant]
     Active Substance: NITROGLYCERIN
     Indication: PRODUCT USED FOR UNKNOWN INDICATION
     Dosage: SPRAY TRANSLINGUAL SOLUTION; USE 1 SPRAY UNDER THE TONGUE AS NEEDED FOR CHEST PAIN
  16. VITAMIN D3 [Concomitant]
     Active Substance: CHOLECALCIFEROL
     Indication: PRODUCT USED FOR UNKNOWN INDICATION
     Route: 048
  17. VOLTAREN [Concomitant]
     Active Substance: DICLOFENAC SODIUM
     Indication: PRODUCT USED FOR UNKNOWN INDICATION
     Dosage: APPLY BID TO AFFECTED AREA
     Route: 062
     Dates: start: 20150514, end: 20150514
  18. ELIQUIS [Concomitant]
     Active Substance: APIXABAN
     Indication: PRODUCT USED FOR UNKNOWN INDICATION
     Route: 048
     Dates: start: 20160621
  19. FUROSEMIDE. [Concomitant]
     Active Substance: FUROSEMIDE
     Indication: PRODUCT USED FOR UNKNOWN INDICATION
     Route: 048
     Dates: start: 20160506, end: 20170601
  20. HUMIRA [Suspect]
     Active Substance: ADALIMUMAB
     Indication: PRODUCT USED FOR UNKNOWN INDICATION
     Route: 058
  21. PANTOPRAZOLE SODIUM. [Concomitant]
     Active Substance: PANTOPRAZOLE SODIUM
     Indication: PRODUCT USED FOR UNKNOWN INDICATION
     Route: 048
     Dates: start: 20110121, end: 20170816
  22. VENTOLIN HFA [Concomitant]
     Active Substance: ALBUTEROL SULFATE
     Indication: PRODUCT USED FOR UNKNOWN INDICATION
     Dosage: 1-2 PUFFS EVERY 4-6 HOURS AS NEEDED AND AS DIRECTED;
     Route: 055
     Dates: start: 20120130, end: 20170928

REACTIONS (47)
  - Gastrointestinal stromal tumour [Unknown]
  - Pulmonary embolism [Unknown]
  - Osteoarthritis [Unknown]
  - Fatigue [Unknown]
  - Arteriosclerosis coronary artery [Unknown]
  - Mitral valve incompetence [Unknown]
  - Osteopenia [Unknown]
  - Gastrooesophageal reflux disease [Unknown]
  - Cough [Unknown]
  - Bronchiectasis [Unknown]
  - Chest pain [Unknown]
  - Headache [Unknown]
  - Urine analysis abnormal [Unknown]
  - Fine motor skill dysfunction [Unknown]
  - Orthostatic hypotension [Unknown]
  - Atrial fibrillation [Unknown]
  - Deafness [Unknown]
  - Deep vein thrombosis [Unknown]
  - Dysphagia [Unknown]
  - Hypothyroidism [Unknown]
  - Bursitis [Unknown]
  - Urinary tract disorder [Unknown]
  - Carotid arteriosclerosis [Unknown]
  - Diastolic dysfunction [Unknown]
  - Angina unstable [Unknown]
  - Oedema peripheral [Unknown]
  - Drug effect incomplete [Unknown]
  - Subclavian artery stenosis [Unknown]
  - Breast cancer [Unknown]
  - Lactase deficiency [Unknown]
  - Colon adenoma [Unknown]
  - Essential hypertension [Unknown]
  - Thrombocytopenia [Unknown]
  - Dyspnoea exertional [Unknown]
  - Hypertension [Unknown]
  - Cataract nuclear [Unknown]
  - Chest injury [Unknown]
  - Palindromic rheumatism [Unknown]
  - Obesity [Unknown]
  - Enthesopathy [Unknown]
  - Venous stenosis [Unknown]
  - Visual impairment [Unknown]
  - Hyperlipidaemia [Unknown]
  - Bronchitis [Unknown]
  - Rheumatoid arthritis [Unknown]
  - Back pain [Unknown]
  - Asthma [Unknown]
